FAERS Safety Report 7781749-X (Version None)
Quarter: 2011Q3

REPORT INFORMATION
  Report Type: 
  Country: None (occurrence: None)
  Receive Date: 20110927
  Receipt Date: 20110405
  Transmission Date: 20111222
  Serious: Yes (Hospitalization)
  Sender: FDA-Public Use
  Company Number: US-GLAXOSMITHKLINE-A0922142A

PATIENT
  Age: 76 Year
  Sex: Male

DRUGS (1)
  1. ROSIGLITAZONE MALEATE [Suspect]
     Indication: DIABETES MELLITUS
     Dosage: 4MG TWICE PER DAY
     Route: 048
     Dates: start: 20060101, end: 20100908

REACTIONS (8)
  - IMMUNE SYSTEM DISORDER [None]
  - RENAL FAILURE [None]
  - HYPERTENSION [None]
  - DIZZINESS [None]
  - CARDIAC FAILURE [None]
  - MYOCARDIAL INFARCTION [None]
  - WEIGHT DECREASED [None]
  - PLEURAL EFFUSION [None]
